FAERS Safety Report 20763826 (Version 1)
Quarter: 2022Q2

REPORT INFORMATION
  Report Type: Spontaneous
  Country: US (occurrence: US)
  Receive Date: 20220428
  Receipt Date: 20220428
  Transmission Date: 20220720
  Serious: No
  Sender: FDA-Public Use
  Company Number: US-PFIZER INC-202200093770

PATIENT

DRUGS (1)
  1. GABAPENTIN [Suspect]
     Active Substance: GABAPENTIN
     Dosage: 900 MG, 1X/DAY

REACTIONS (5)
  - Abdominal pain upper [Unknown]
  - Herpes zoster [Unknown]
  - Erythema [Unknown]
  - Sensitive skin [Unknown]
  - Therapeutic response unexpected [Unknown]
